FAERS Safety Report 5614714-9 (Version None)
Quarter: 2008Q1

REPORT INFORMATION
  Report Type: 
  Country: None (occurrence: None)
  Receive Date: 20080131
  Receipt Date: 20080122
  Transmission Date: 20080703
  Serious: Yes (Other)
  Sender: FDA-Public Use
  Company Number: 8029453

PATIENT
  Age: 7 Year
  Sex: Female

DRUGS (1)
  1. XYZAL [Suspect]
     Indication: RASH
     Dosage: 5 MG 1/D PO
     Route: 048
     Dates: start: 20080103

REACTIONS (2)
  - IDIOPATHIC THROMBOCYTOPENIC PURPURA [None]
  - VIRAL INFECTION [None]
